FAERS Safety Report 10011559 (Version 2)
Quarter: 2014Q1

REPORT INFORMATION
  Report Type: Spontaneous
  Country: BE (occurrence: BE)
  Receive Date: 20140314
  Receipt Date: 20140325
  Transmission Date: 20141002
  Serious: Yes (Other)
  Sender: FDA-Public Use
  Company Number: BE-ASTELLAS-2014EU002163

PATIENT
  Sex: Female
  Weight: 73 kg

DRUGS (5)
  1. VESICARE [Suspect]
     Indication: INCONTINENCE
     Dosage: 5 MG, UID/QD
     Route: 048
     Dates: start: 201401, end: 20140220
  2. DOXYCYCLINE [Concomitant]
     Indication: MALARIA PROPHYLAXIS
     Dosage: 100 MG, UID/QD
     Route: 065
     Dates: start: 20131220, end: 20140130
  3. STAMARIL [Concomitant]
     Indication: IMMUNISATION
     Dosage: UNK
     Route: 065
     Dates: start: 20131220, end: 20131220
  4. KALETRA [Concomitant]
     Indication: HIV INFECTION
     Dosage: UNK
     Route: 065
     Dates: start: 2009
  5. TRUVADA [Concomitant]
     Indication: HIV INFECTION
     Dosage: UNK
     Route: 065
     Dates: start: 2009

REACTIONS (2)
  - Hepatocellular injury [Recovering/Resolving]
  - Influenza like illness [Recovered/Resolved]
